FAERS Safety Report 5497924-3 (Version None)
Quarter: 2007Q4

REPORT INFORMATION
  Report Type: 
  Country: None (occurrence: None)
  Receive Date: 20071025
  Receipt Date: 20071015
  Transmission Date: 20080405
  Serious: Yes (Hospitalization)
  Sender: FDA-Public Use
  Company Number: CH-PFIZER INC-2007085974

PATIENT
  Sex: Female

DRUGS (3)
  1. SORTIS [Suspect]
     Indication: HYPERCHOLESTEROLAEMIA
     Dosage: TEXT:EVERY DAY
     Route: 048
  2. STARLIX [Suspect]
     Indication: TYPE 2 DIABETES MELLITUS
     Dosage: TEXT:EVERY DAY
     Route: 048
  3. METFORMIN [Suspect]
     Indication: TYPE 2 DIABETES MELLITUS
     Route: 048

REACTIONS (3)
  - EOSINOPHILIA [None]
  - JAUNDICE [None]
  - LIVER INJURY [None]
